FAERS Safety Report 23330988 (Version 1)
Quarter: 2023Q4

REPORT INFORMATION
  Report Type: Other
  Country: US (occurrence: None)
  Receive Date: 20231222
  Receipt Date: 20231222
  Transmission Date: 20240110
  Serious: Yes (Other)
  Sender: FDA-Public Use
  Company Number: US-ROCHE-3467685

PATIENT
  Age: 71 Year
  Sex: Female

DRUGS (17)
  1. ACTEMRA [Suspect]
     Active Substance: TOCILIZUMAB
     Indication: Rheumatoid arthritis
     Dosage: ONE SYRINGE INJECTED WEEKLY, REFILL: 5, QUANTITY: 12
     Route: 058
  2. ACTEMRA [Suspect]
     Active Substance: TOCILIZUMAB
  3. ACTEMRA [Suspect]
     Active Substance: TOCILIZUMAB
     Indication: Giant cell arteritis
  4. ACTEMRA [Suspect]
     Active Substance: TOCILIZUMAB
  5. ASPIRIN [Concomitant]
     Active Substance: ASPIRIN
  6. LIPITOR [Concomitant]
     Active Substance: ATORVASTATIN CALCIUM
  7. VITAMIN D3 [Concomitant]
     Active Substance: CHOLECALCIFEROL
  8. PROZAC [Concomitant]
     Active Substance: FLUOXETINE HYDROCHLORIDE
  9. LAMICTAL [Concomitant]
     Active Substance: LAMOTRIGINE
  10. ARAVA [Concomitant]
     Active Substance: LEFLUNOMIDE
  11. GLUCOPHAGE [Concomitant]
     Active Substance: METFORMIN HYDROCHLORIDE
  12. ZYPREXA [Concomitant]
     Active Substance: OLANZAPINE
  13. PROTONIX [Concomitant]
     Active Substance: PANTOPRAZOLE SODIUM
  14. DELTASONE [Concomitant]
     Active Substance: PREDNISONE
  15. MYSOLINE [Concomitant]
     Active Substance: PRIMIDONE
  16. MOTEGRITY [Concomitant]
     Active Substance: PRUCALOPRIDE SUCCINATE
  17. SPIRIVA [Concomitant]
     Active Substance: TIOTROPIUM BROMIDE MONOHYDRATE

REACTIONS (15)
  - Idiopathic pulmonary fibrosis [Unknown]
  - Polymyalgia rheumatica [Unknown]
  - Gastrooesophageal reflux disease [Unknown]
  - Constipation [Unknown]
  - Histoplasmosis [Unknown]
  - Limb injury [Unknown]
  - Immunosuppression [Unknown]
  - Type 2 diabetes mellitus [Unknown]
  - Essential tremor [Unknown]
  - Osteopenia [Unknown]
  - Scoliosis [Unknown]
  - Diverticulitis [Unknown]
  - Back pain [Unknown]
  - Chronic obstructive pulmonary disease [Unknown]
  - Bipolar II disorder [Unknown]
